FAERS Safety Report 21365722 (Version 1)
Quarter: 2022Q3

REPORT INFORMATION
  Report Type: Spontaneous
  Country: FR (occurrence: FR)
  Receive Date: 20220922
  Receipt Date: 20220922
  Transmission Date: 20221027
  Serious: Yes (Death)
  Sender: FDA-Public Use
  Company Number: None

PATIENT
  Age: 87 Year
  Sex: Male
  Weight: 86 kg

DRUGS (8)
  1. AMLODIPINE [Suspect]
     Active Substance: AMLODIPINE BESYLATE
     Indication: Hypertension
     Dates: end: 20210331
  2. IRBESARTAN [Suspect]
     Active Substance: IRBESARTAN
     Indication: Hypertension
     Dates: end: 20210331
  3. PANTOPRAZOLE [Suspect]
     Active Substance: PANTOPRAZOLE
     Indication: Product used for unknown indication
     Dates: end: 20210331
  4. POLYETHYLENE GLYCOLS [Suspect]
     Active Substance: POLYETHYLENE GLYCOLS
     Indication: Constipation
     Dates: end: 20210331
  5. OXAZEPAM [Suspect]
     Active Substance: OXAZEPAM
     Indication: Alcohol withdrawal syndrome
     Dates: end: 20210331
  6. TAMSULOSIN [Suspect]
     Active Substance: TAMSULOSIN
     Indication: Prostatic adenoma
     Dates: end: 20210331
  7. XARELTO [Suspect]
     Active Substance: RIVAROXABAN
     Indication: Thrombosis prophylaxis
     Dosage: STRENGTH: 15 MG
     Dates: end: 20210331
  8. Dexeryl [Concomitant]
     Indication: Dry skin
     Dates: start: 20210331, end: 20210331

REACTIONS (1)
  - Cardio-respiratory arrest [Fatal]

NARRATIVE: CASE EVENT DATE: 20210331
